FAERS Safety Report 8353778-9 (Version None)
Quarter: 2012Q2

REPORT INFORMATION
  Report Type: 
  Country: None (occurrence: None)
  Receive Date: 20120511
  Receipt Date: 20111107
  Transmission Date: 20120825
  Serious: No
  Sender: FDA-Public Use
  Company Number: US-GLAXOSMITHKLINE-A0952710A

PATIENT
  Age: 44 Year
  Sex: Female
  Weight: 77.3 kg

DRUGS (6)
  1. AVASTIN [Concomitant]
  2. TYKERB [Suspect]
     Dosage: 750MG PER DAY
     Route: 048
  3. ZOFRAN [Concomitant]
  4. KEPPRA [Concomitant]
  5. HERCEPTIN [Concomitant]
  6. TAXOL [Concomitant]

REACTIONS (1)
  - DIARRHOEA [None]
